FAERS Safety Report 8791217 (Version 1)
Quarter: 2012Q4

REPORT INFORMATION
  Report Type: Spontaneous
  Country: US (occurrence: None)
  Receive Date: 20120913
  Receipt Date: 20120913
  Transmission Date: 20130627
  Serious: No
  Sender: FDA-Public Use
  Company Number: None

PATIENT
  Age: 41 Year
  Sex: Female
  Weight: 65.77 kg

DRUGS (1)
  1. MESALAMINE [Suspect]
     Dosage: 4 x  per day
     Dates: start: 201203, end: 201207

REACTIONS (3)
  - Weight increased [None]
  - Alopecia [None]
  - Hair texture abnormal [None]
